FAERS Safety Report 5036213-8 (Version None)
Quarter: 2006Q2

REPORT INFORMATION
  Report Type: 
  Country: None (occurrence: None)
  Receive Date: 20060601
  Receipt Date: 20051214
  Transmission Date: 20061013
  Serious: No
  Sender: FDA-Public Use
  Company Number: US200512002449

PATIENT
  Sex: Male

DRUGS (8)
  1. CYMBALTA [Suspect]
     Indication: DEPRESSION
     Dosage: SEE IMAGE
     Dates: start: 20051107, end: 20051114
  2. CYMBALTA [Suspect]
     Indication: DEPRESSION
     Dosage: SEE IMAGE
     Dates: start: 20051115, end: 20051203
  3. NEURONTIN [Concomitant]
  4. CLONAZEPAM [Concomitant]
  5. ANTIHYPERTENSIVE AGENT (ANTIHYPERTENSIVE AGENT UNKNOWN FORMULATION) UN [Concomitant]
  6. PROTONIX [Concomitant]
  7. RISPERDAL /SWE/ (RISPERIDONE) [Concomitant]
  8. TRAZODONE HCL [Concomitant]

REACTIONS (3)
  - AGGRESSION [None]
  - SUICIDAL IDEATION [None]
  - THINKING ABNORMAL [None]
